FAERS Safety Report 7865636-4 (Version None)
Quarter: 2011Q4

REPORT INFORMATION
  Report Type: 
  Country: None (occurrence: None)
  Receive Date: 20111028
  Receipt Date: 20110127
  Transmission Date: 20120403
  Serious: No
  Sender: FDA-Public Use
  Company Number: US-GLAXOSMITHKLINE-A0909835A

PATIENT
  Age: 66 Year
  Sex: Female

DRUGS (7)
  1. HYDROCHLOROTHIAZIDE [Concomitant]
  2. LODINE XL [Concomitant]
  3. ADVAIR DISKUS 100/50 [Suspect]
     Indication: ASTHMA
     Dosage: 1PUFF TWICE PER DAY
     Route: 055
     Dates: start: 20110110
  4. VITAMIN TAB [Concomitant]
  5. CALCIUM CARBONATE [Concomitant]
  6. MONOPRIL [Concomitant]
  7. FISH OIL [Concomitant]

REACTIONS (1)
  - DRUG INEFFECTIVE [None]
